FAERS Safety Report 8915362 (Version 2)
Quarter: 2012Q4

REPORT INFORMATION
  Report Type: 
  Country: CA (occurrence: CA)
  Receive Date: 20121119
  Receipt Date: 20121129
  Transmission Date: 20130627
  Serious: Yes (Other)
  Sender: FDA-Public Use
  Company Number: CA-ASTRAZENECA-2012SE85648

PATIENT
  Age: 70 Year
  Sex: Female

DRUGS (1)
  1. XYLOCAINE [Suspect]
     Route: 065

REACTIONS (1)
  - Infection [Not Recovered/Not Resolved]
